FAERS Safety Report 9513077 (Version 1)
Quarter: 2013Q1

REPORT INFORMATION
  Report Type: Spontaneous
  Country: US (occurrence: None)
  Receive Date: 20130305
  Receipt Date: 20130305
  Transmission Date: 20140127
  Serious: Yes (Other)
  Sender: FDA-Public Use
  Company Number: 163-21880-12101501

PATIENT
  Age: 64 Year
  Sex: Female
  Weight: 90.72 kg

DRUGS (11)
  1. REVLIMID [Suspect]
     Indication: PLASMA CELL MYELOMA
     Dosage: 21 IN 28 D
     Route: 048
     Dates: start: 20070301
  2. ALLOPURINOL [Concomitant]
  3. CALCIUM [Concomitant]
  4. NEURONTIN [Concomitant]
  5. PROTONIX [Concomitant]
  6. OXYCODONE HCL [Concomitant]
  7. FISH OIL [Concomitant]
  8. ASA [Concomitant]
  9. DECARDRON [Concomitant]
  10. LISINOPRIL [Concomitant]
  11. TURMERIC [Concomitant]

REACTIONS (4)
  - Feeling hot [None]
  - Pain in extremity [None]
  - Burning sensation [None]
  - Back pain [None]
